FAERS Safety Report 10953118 (Version 2)
Quarter: 2015Q1

REPORT INFORMATION
  Report Type: Spontaneous
  Country: US (occurrence: None)
  Receive Date: 20150226
  Receipt Date: 20150226
  Transmission Date: 20150721
  Serious: Yes (Hospitalization, Other)
  Sender: FDA-Public Use
  Company Number: TPA2012A04285

PATIENT
  Age: 83 Year
  Sex: Female

DRUGS (7)
  1. AVANDAMET (METFORMIN HYDROCHLORIDE, ROSIGLITAZONE MALEATE) [Concomitant]
  2. ACTOS [Suspect]
     Active Substance: PIOGLITAZONE HYDROCHLORIDE
     Indication: TYPE 2 DIABETES MELLITUS
     Dates: start: 200005
  3. AVANDARYL (GLIMEPIRIDE, ROSIGLITAZONE MALEATE) [Concomitant]
  4. METFORMIN [Concomitant]
     Active Substance: METFORMIN HYDROCHLORIDE
  5. DUETACT [Suspect]
     Active Substance: GLIMEPIRIDE\PIOGLITAZONE HYDROCHLORIDE
     Indication: TYPE 2 DIABETES MELLITUS
     Dates: start: 20070921, end: 20120215
  6. AMARYL [Concomitant]
     Active Substance: GLIMEPIRIDE
  7. AVANDIA (ROSIGLITAZONE MALEATE) [Concomitant]

REACTIONS (5)
  - Anxiety [None]
  - Deep vein thrombosis [None]
  - Bladder cancer [None]
  - Bladder transitional cell carcinoma [None]
  - Depression [None]

NARRATIVE: CASE EVENT DATE: 201202
